FAERS Safety Report 10253776 (Version 1)
Quarter: 2014Q2

REPORT INFORMATION
  Report Type: Spontaneous
  Country: CN (occurrence: CN)
  Receive Date: 20140623
  Receipt Date: 20140623
  Transmission Date: 20141212
  Serious: Yes (Other)
  Sender: FDA-Public Use
  Company Number: CN-ASTRAZENECA-2014SE42462

PATIENT
  Sex: Female

DRUGS (1)
  1. QUETIAPINE FUMARATE [Suspect]
     Indication: PSYCHOTIC DISORDER
     Route: 048
     Dates: start: 20130707, end: 20130902

REACTIONS (5)
  - Unresponsive to stimuli [Unknown]
  - Extrapyramidal disorder [Recovering/Resolving]
  - Hypertonia [Unknown]
  - Stress [Unknown]
  - Restlessness [Unknown]
